FAERS Safety Report 4964903-1 (Version None)
Quarter: 2006Q2

REPORT INFORMATION
  Report Type: 
  Country: None (occurrence: None)
  Receive Date: 20060406
  Receipt Date: 20060331
  Transmission Date: 20061013
  Serious: Yes (Other)
  Sender: FDA-Public Use
  Company Number: US-JNJFOC-20060400420

PATIENT
  Age: 50 Year
  Sex: Female
  Weight: 72.58 kg

DRUGS (5)
  1. MONISTAT [Suspect]
     Route: 067
  2. COUMADIN [Interacting]
     Indication: DRUG USE FOR UNKNOWN INDICATION
  3. BP MED [Concomitant]
  4. CHOLESTEROL MED [Concomitant]
  5. HEART MED [Concomitant]

REACTIONS (3)
  - DRUG INTERACTION [None]
  - ECCHYMOSIS [None]
  - INTERNATIONAL NORMALISED RATIO INCREASED [None]
